FAERS Safety Report 25035569 (Version 1)
Quarter: 2025Q1

REPORT INFORMATION
  Report Type: Spontaneous
  Country: PT (occurrence: PT)
  Receive Date: 20250304
  Receipt Date: 20250304
  Transmission Date: 20250409
  Serious: Yes (Life-Threatening, Hospitalization)
  Sender: MERCK SHARP & DOHME LLC
  Company Number: None

PATIENT
  Age: 49 Year
  Sex: Female
  Weight: 56 kg

DRUGS (7)
  1. KEYTRUDA [Suspect]
     Active Substance: PEMBROLIZUMAB
     Indication: Breast cancer
     Dosage: 200MG EVERY 3 WEEKS
     Route: 042
     Dates: start: 20241206, end: 202502
  2. CLEMASTINE [Concomitant]
     Active Substance: CLEMASTINE
  3. ONDANSETRON [Concomitant]
     Active Substance: ONDANSETRON
  4. PACLITAXEL [Concomitant]
     Active Substance: PACLITAXEL
  5. CARBOPLATIN [Concomitant]
     Active Substance: CARBOPLATIN
  6. FAMOTIDINE [Concomitant]
     Active Substance: FAMOTIDINE
  7. HYDROCORTISONE [Concomitant]
     Active Substance: HYDROCORTISONE

REACTIONS (6)
  - Febrile neutropenia [Recovering/Resolving]
  - Renal failure [Recovering/Resolving]
  - Adrenal insufficiency [Recovering/Resolving]
  - Hypothyroidism [Recovering/Resolving]
  - Colitis [Recovering/Resolving]
  - Pancytopenia [Recovering/Resolving]

NARRATIVE: CASE EVENT DATE: 20250210
